FAERS Safety Report 18784076 (Version 3)
Quarter: 2022Q4

REPORT INFORMATION
  Report Type: Spontaneous
  Country: US (occurrence: US)
  Receive Date: 20210125
  Receipt Date: 20221014
  Transmission Date: 20230113
  Serious: No
  Sender: FDA-Public Use
  Company Number: US-PFIZER INC-2021055769

PATIENT
  Age: 74 Year
  Sex: Female

DRUGS (3)
  1. IBRANCE [Suspect]
     Active Substance: PALBOCICLIB
     Indication: Breast cancer female
     Dosage: 75 MG, CYCLIC (1 DAILY FOR 21 DAYS, THEN 7 DAYS OFF)
     Route: 048
     Dates: start: 201808
  2. IBRANCE [Suspect]
     Active Substance: PALBOCICLIB
     Dosage: 75 MG, CYCLIC (DAILY FOR 21 DAYS, THEN 7 DAYS OFF)
     Route: 048
     Dates: start: 202108
  3. IBRANCE [Suspect]
     Active Substance: PALBOCICLIB
     Dosage: 75 MG, CYCLIC (DAILY FOR 28 DAYS ON FOLLOWED BY 28 DAYS OFF)

REACTIONS (3)
  - Off label use [Unknown]
  - Neutrophil count abnormal [Unknown]
  - Neutrophil count decreased [Recovered/Resolved]
